FAERS Safety Report 9775395 (Version 1)
Quarter: 2013Q4

REPORT INFORMATION
  Report Type: Spontaneous
  Country: US (occurrence: None)
  Receive Date: 20131218
  Receipt Date: 20131218
  Transmission Date: 20140711
  Serious: Yes (Hospitalization)
  Sender: FDA-Public Use
  Company Number: 7257110

PATIENT
  Age: 3 Year
  Sex: Female

DRUGS (1)
  1. LEVOTHYROXINE [Suspect]
     Indication: PRODUCT USED FOR UNKNOWN INDICATION

REACTIONS (9)
  - Hyperthyroidism [None]
  - Pyrexia [None]
  - Vomiting [None]
  - Tachycardia [None]
  - Hypertension [None]
  - Dehydration [None]
  - Tachypnoea [None]
  - Depression [None]
  - Accidental exposure to product by child [None]
